FAERS Safety Report 5176845-X (Version None)
Quarter: 2006Q4

REPORT INFORMATION
  Report Type: 
  Country: None (occurrence: None)
  Receive Date: 20061218
  Receipt Date: 20061207
  Transmission Date: 20070319
  Serious: Yes (Other)
  Sender: FDA-Public Use
  Company Number: JP-JNJFOC-20061202745

PATIENT
  Age: 8 Decade

DRUGS (2)
  1. LEVOFLOXACIN [Suspect]
     Indication: INFECTION
     Route: 048
  2. DIOVAN [Concomitant]
     Route: 065

REACTIONS (2)
  - HYPOALBUMINAEMIA [None]
  - OEDEMA [None]
